FAERS Safety Report 8583781-5 (Version None)
Quarter: 2012Q3

REPORT INFORMATION
  Report Type: 
  Country: None (occurrence: None)
  Receive Date: 20120810
  Receipt Date: 20120807
  Transmission Date: 20120928
  Serious: Yes (Other)
  Sender: FDA-Public Use
  Company Number: BE-AMGEN-BELSP2012049608

PATIENT
  Age: 78 Year
  Sex: Female

DRUGS (5)
  1. NPLATE [Suspect]
     Indication: IDIOPATHIC THROMBOCYTOPENIC PURPURA
     Dosage: 0.5 MUG, UNK
  2. LIPID MODIFYING AGENTS [Concomitant]
     Indication: BLOOD CHOLESTEROL ABNORMAL
  3. ANTIDEPRESSANTS [Concomitant]
     Indication: DEPRESSION
  4. THYROID THERAPY [Concomitant]
  5. ANTIHYPERTENSIVES [Concomitant]
     Indication: HYPERTENSION

REACTIONS (2)
  - PELVIC FRACTURE [None]
  - FALL [None]
